FAERS Safety Report 11433546 (Version 3)
Quarter: 2016Q2

REPORT INFORMATION
  Report Type: Report from Study
  Country: CH (occurrence: CH)
  Receive Date: 20150831
  Receipt Date: 20160415
  Transmission Date: 20160815
  Serious: Yes (Hospitalization)
  Sender: FDA-Public Use
  Company Number: CH-ROCHE-1627127

PATIENT
  Age: 73 Year
  Sex: Female

DRUGS (2)
  1. ERLOTINIB [Suspect]
     Active Substance: ERLOTINIB
     Indication: LUNG NEOPLASM MALIGNANT
     Dosage: LAST DOSE PRIOR TO SAE: 17/MAY/2015
     Route: 048
     Dates: start: 20141030
  2. BEVACIZUMAB [Suspect]
     Active Substance: BEVACIZUMAB
     Indication: LUNG NEOPLASM MALIGNANT
     Dosage: ACTUAL DOSE GIVEN: 750 MG. LAST DOSE PRIOR TO SAE: 17/APR/2015
     Route: 042
     Dates: start: 20141030

REACTIONS (1)
  - Nervous system disorder [Recovered/Resolved with Sequelae]

NARRATIVE: CASE EVENT DATE: 20150601
